FAERS Safety Report 5219510-2 (Version None)
Quarter: 2007Q1

REPORT INFORMATION
  Report Type: 
  Country: None (occurrence: None)
  Receive Date: 20070125
  Receipt Date: 20070102
  Transmission Date: 20070707
  Serious: Yes (Death, Other)
  Sender: FDA-Public Use
  Company Number: US-PFIZER INC-2007001959

PATIENT
  Age: 79 Year
  Sex: Male

DRUGS (1)
  1. BEXTRA [Suspect]
     Indication: BACK PAIN
     Route: 048
     Dates: start: 20021101, end: 20041001

REACTIONS (1)
  - MYOCARDIAL INFARCTION [None]
